FAERS Safety Report 9760263 (Version 1)
Quarter: 2013Q4

REPORT INFORMATION
  Report Type: Spontaneous
  Country: US (occurrence: US)
  Receive Date: 20131216
  Receipt Date: 20131216
  Transmission Date: 20140711
  Serious: No
  Sender: FDA-Public Use
  Company Number: US-GILEAD-2010-0028847

PATIENT
  Age: 65 Year
  Sex: Female

DRUGS (10)
  1. LETAIRIS [Suspect]
     Indication: PULMONARY ARTERIAL HYPERTENSION
     Route: 048
     Dates: start: 20100420
  2. SINGULAIR [Concomitant]
  3. NITROGLYCER DIS [Concomitant]
  4. DILTIAZEM [Concomitant]
  5. MEGESTROL AC [Concomitant]
  6. DIGOXIN [Concomitant]
  7. ALBUTEROL [Concomitant]
  8. ADVAIR DISKUS [Concomitant]
  9. ATROVENT [Concomitant]
  10. THEOPHYLLINE [Concomitant]

REACTIONS (1)
  - Nausea [Recovered/Resolved]
